FAERS Safety Report 6146046-7 (Version None)
Quarter: 2009Q2

REPORT INFORMATION
  Report Type: 
  Country: None (occurrence: None)
  Receive Date: 20090406
  Receipt Date: 20090406
  Transmission Date: 20091009
  Serious: Yes (Other)
  Sender: FDA-Public Use
  Company Number: None

PATIENT
  Age: 23 Year
  Sex: Male
  Weight: 63.5036 kg

DRUGS (1)
  1. NASAL DECONGESTENT PE 10MG RITE AID CORPORATION [Suspect]
     Indication: NASAL CONGESTION
     Dosage: 1 EVER 4 HOURS
     Dates: start: 20090401, end: 20090401

REACTIONS (1)
  - HEADACHE [None]
